FAERS Safety Report 5515376-1 (Version None)
Quarter: 2007Q4

REPORT INFORMATION
  Report Type: 
  Country: None (occurrence: None)
  Receive Date: 20071109
  Receipt Date: 20071017
  Transmission Date: 20080405
  Serious: Yes (Disabling)
  Sender: FDA-Public Use
  Company Number: 2007PV00042

PATIENT
  Age: 47 Year
  Sex: Male

DRUGS (5)
  1. DEPOCYT [Suspect]
     Indication: METASTASES TO MENINGES
     Dosage: 50 MG; X1; INTH
     Route: 037
  2. DEXAMETHASONE [Concomitant]
  3. METHOTREXATE [Concomitant]
  4. VINCRISTINE [Concomitant]
  5. RITUXAN [Concomitant]

REACTIONS (7)
  - BEDRIDDEN [None]
  - CNS VENTRICULITIS [None]
  - DEPRESSED LEVEL OF CONSCIOUSNESS [None]
  - DISORIENTATION [None]
  - EPENDYMITIS [None]
  - MENTAL IMPAIRMENT [None]
  - POST PROCEDURAL HAEMORRHAGE [None]
